FAERS Safety Report 7710336-4 (Version None)
Quarter: 2011Q3

REPORT INFORMATION
  Report Type: 
  Country: None (occurrence: None)
  Receive Date: 20110810
  Receipt Date: 20110804
  Transmission Date: 20111222
  Serious: Yes (Other)
  Sender: FDA-Public Use
  Company Number: 2011029461

PATIENT
  Age: 12 Year
  Sex: Female

DRUGS (6)
  1. PHENERGAN /00033001/ (PROMETHAZINE) [Concomitant]
  2. SINGULAIR [Concomitant]
  3. ADVAIR (SERETIDE /014020901/) [Concomitant]
  4. VIVAGLOBIN [Suspect]
     Indication: IMMUNODEFICIENCY COMMON VARIABLE
     Route: 058
  5. ASMANEX TWISTHALER [Suspect]
     Indication: ASTHMA
     Dosage: 2 PUFFS TWICE DAILY
     Route: 055
  6. CLARITIN [Concomitant]

REACTIONS (7)
  - BLOOD 1,25-DIHYDROXYCHOLECALCIFEROL INCREASED [None]
  - FATIGUE [None]
  - DYSPNOEA [None]
  - OPEN ANGLE GLAUCOMA [None]
  - COUGH [None]
  - RESPIRATORY TRACT CONGESTION [None]
  - INTRAOCULAR PRESSURE INCREASED [None]
